FAERS Safety Report 8561315-9 (Version None)
Quarter: 2012Q3

REPORT INFORMATION
  Report Type: 
  Country: None (occurrence: None)
  Receive Date: 20120727
  Receipt Date: 20120727
  Transmission Date: 20120928
  Serious: Yes (Death)
  Sender: FDA-Public Use
  Company Number: None

PATIENT
  Age: 87 Year
  Sex: Female
  Weight: 63 kg

DRUGS (11)
  1. TYLENOL [Concomitant]
  2. ZINC SULFATE [Concomitant]
  3. MULTI-VITAMINS [Concomitant]
  4. PRAVASTATIN [Concomitant]
  5. ZETIA [Concomitant]
  6. LA... [Concomitant]
  7. AMLODIPINE [Concomitant]
  8. WARFARIN SODIUM [Suspect]
     Indication: ATRIAL FIBRILLATION
     Dosage: 3.5MG DAILY PO
     Route: 048
  9. LORATADINE [Concomitant]
  10. PANTOPRZOLE [Concomitant]
  11. FISH OIL [Concomitant]

REACTIONS (3)
  - APNOEA [None]
  - HAEMORRHAGE INTRACRANIAL [None]
  - INTERNATIONAL NORMALISED RATIO INCREASED [None]
